FAERS Safety Report 10133872 (Version 3)
Quarter: 2014Q2

REPORT INFORMATION
  Report Type: Report from Study
  Country: PT (occurrence: PT)
  Receive Date: 20140428
  Receipt Date: 20140530
  Transmission Date: 20141212
  Serious: Yes (Other)
  Sender: FDA-Public Use
  Company Number: PHHY2012PT121495

PATIENT
  Age: 42 Year
  Sex: Male

DRUGS (5)
  1. GILENYA [Suspect]
     Indication: MULTIPLE SCLEROSIS
     Dosage: 0.5 MG, QD
     Route: 048
     Dates: start: 20120911, end: 201302
  2. ALFUZIN [Concomitant]
  3. MAGNORAL [Concomitant]
  4. DIHEXYVERINE [Concomitant]
  5. CIPRALEX [Concomitant]

REACTIONS (5)
  - Central nervous system lesion [Not Recovered/Not Resolved]
  - Muscular weakness [Recovered/Resolved]
  - Gait disturbance [Recovered/Resolved]
  - Vision blurred [Recovered/Resolved]
  - Drug ineffective [Unknown]
